FAERS Safety Report 4946623-2 (Version None)
Quarter: 2006Q1

REPORT INFORMATION
  Report Type: 
  Country: None (occurrence: None)
  Receive Date: 20060317
  Receipt Date: 20060306
  Transmission Date: 20060701
  Serious: Yes (Other)
  Sender: FDA-Public Use
  Company Number: PHFR2006GB01075

PATIENT
  Age: 37 Year
  Sex: Male

DRUGS (3)
  1. CYCLOSPORINE [Suspect]
     Indication: DERMATITIS ATOPIC
     Dosage: 3MG/KG
     Route: 065
  2. CYCLOSPORINE [Suspect]
     Dosage: 4MG/KG/DAY
     Route: 065
  3. SERTRALINE [Suspect]
     Indication: DEPRESSION
     Dosage: 50 MG/DAY
     Route: 065

REACTIONS (10)
  - BLOOD CREATINE PHOSPHOKINASE INCREASED [None]
  - BLOOD CREATININE INCREASED [None]
  - DECREASED APPETITE [None]
  - DRUG INTERACTION [None]
  - ELECTROMYOGRAM ABNORMAL [None]
  - MUSCLE SPASMS [None]
  - MYALGIA [None]
  - MYOPATHY TOXIC [None]
  - SLEEP DISORDER [None]
  - TREMOR [None]
